FAERS Safety Report 19429269 (Version 2)
Quarter: 2021Q2

REPORT INFORMATION
  Report Type: Spontaneous
  Country: DE (occurrence: DE)
  Receive Date: 20210617
  Receipt Date: 20210622
  Transmission Date: 20210717
  Serious: Yes (Other)
  Sender: FDA-Public Use
  Company Number: NVSC2021DE135053

PATIENT
  Age: 46 Year
  Sex: Male

DRUGS (4)
  1. PREDNISOLONE. [Suspect]
     Active Substance: PREDNISOLONE
     Indication: INFLAMMATORY BOWEL DISEASE
     Dosage: 15 MILLIGRAM DAILY; DOSE AT THE TIME OF DISCONTINUATION
     Route: 065
     Dates: start: 2015, end: 2015
  2. METFORMIN [Suspect]
     Active Substance: METFORMIN HYDROCHLORIDE
     Indication: PANCREATOGENOUS DIABETES
     Dosage: 500 MG, Q12H(THE INSULIN THERAPY WAS STOPPED ON 9 OCTOBER 2015)
     Route: 065
     Dates: start: 20151010
  3. METFORMIN [Suspect]
     Active Substance: METFORMIN HYDROCHLORIDE
     Indication: STEROID DIABETES
     Dosage: HE WAS SUCCESSFULLY TREATED AGAIN WITH METFORMIN FOR 6 MONTHS
     Route: 065
  4. PREDNISOLONE. [Suspect]
     Active Substance: PREDNISOLONE
     Dosage: 50 MILLIGRAM DAILY; WITH SLOW TAPERING
     Route: 065
     Dates: start: 20150807, end: 20150924

REACTIONS (6)
  - Faeces soft [Recovered/Resolved]
  - Steroid diabetes [Recovering/Resolving]
  - Drug ineffective for unapproved indication [Unknown]
  - Flatulence [Recovered/Resolved]
  - Contraindicated product administered [Unknown]
  - Abdominal pain [Recovered/Resolved]

NARRATIVE: CASE EVENT DATE: 2015
